FAERS Safety Report 7389368-4 (Version None)
Quarter: 2011Q2

REPORT INFORMATION
  Report Type: 
  Country: None (occurrence: None)
  Receive Date: 20110401
  Receipt Date: 20110323
  Transmission Date: 20111010
  Serious: Yes (Hospitalization)
  Sender: FDA-Public Use
  Company Number: B0707814A

PATIENT
  Sex: Female

DRUGS (5)
  1. KARDEGIC [Suspect]
     Indication: PROPHYLAXIS
     Dosage: 75MG PER DAY
     Route: 048
  2. VASTAREL [Concomitant]
     Indication: CARDIOVASCULAR INSUFFICIENCY
     Dosage: 20MG TWICE PER DAY
     Route: 048
  3. LEXOMIL [Concomitant]
     Indication: ANXIETY
     Dosage: 3MG AT NIGHT
     Route: 048
  4. ARIXTRA [Suspect]
     Indication: DEEP VEIN THROMBOSIS
     Dosage: 5MG PER DAY
     Route: 058
     Dates: start: 20110111, end: 20110118
  5. ISOPTIN [Concomitant]
     Indication: HYPERTENSION
     Dosage: 40MG TWICE PER DAY
     Route: 048

REACTIONS (6)
  - DRUG INTERACTION [None]
  - OEDEMA PERIPHERAL [None]
  - CONTRAINDICATION TO MEDICAL TREATMENT [None]
  - ANAEMIA [None]
  - INFLAMMATION [None]
  - HAEMATOMA [None]
